FAERS Safety Report 17858832 (Version 2)
Quarter: 2020Q2

REPORT INFORMATION
  Report Type: Report from Study
  Country: None (occurrence: US)
  Receive Date: 20200604
  Receipt Date: 20200605
  Transmission Date: 20200714
  Serious: No
  Sender: FDA-Public Use
  Company Number: US-US WORLDMEDS, LLC-USW202003-000465

PATIENT
  Sex: Male

DRUGS (4)
  1. APOKYN [Suspect]
     Active Substance: APOMORPHINE HYDROCHLORIDE
     Indication: PARKINSON^S DISEASE
     Route: 058
     Dates: start: 20200302, end: 2020
  2. APOKYN [Suspect]
     Active Substance: APOMORPHINE HYDROCHLORIDE
     Dosage: 0.2 ML UNDER THE SKIN, USE AS NEEDED. DOSES MUST BE SEPARATED, TITRATE BY 0.1 ML EVERY FEW DAYS UP T
     Route: 058
     Dates: end: 2020
  3. LEVODOPA [Concomitant]
     Active Substance: LEVODOPA
     Dosage: UNKNOWN
  4. TIGAN [Concomitant]
     Active Substance: TRIMETHOBENZAMIDE HYDROCHLORIDE
     Indication: PROPHYLAXIS OF NAUSEA AND VOMITING
     Dosage: UNKNOWN
     Dates: start: 20200228

REACTIONS (3)
  - Product dose omission [Unknown]
  - Blood pressure fluctuation [Unknown]
  - Malaise [Unknown]
